FAERS Safety Report 4804368-3 (Version None)
Quarter: 2005Q4

REPORT INFORMATION
  Report Type: 
  Country: None (occurrence: None)
  Receive Date: 20051014
  Receipt Date: 20050930
  Transmission Date: 20060501
  Serious: Yes (Life-Threatening, Hospitalization)
  Sender: FDA-Public Use
  Company Number: 2005-02044

PATIENT
  Age: 53 Year
  Sex: Female
  Weight: 67.1 kg

DRUGS (2)
  1. VELCADE [Suspect]
     Indication: NON-SMALL CELL LUNG CANCER
     Dosage: 1.60 MG/M2
     Dates: start: 20050919, end: 20050926
  2. ALIMTA [Suspect]
     Indication: NON-SMALL CELL LUNG CANCER
     Dosage: 500.00 MG/M2
     Dates: start: 20050919, end: 20050919

REACTIONS (16)
  - ANXIETY [None]
  - ATRIAL FIBRILLATION [None]
  - ATRIAL FLUTTER [None]
  - BLOOD POTASSIUM DECREASED [None]
  - CONSTIPATION [None]
  - DEEP VEIN THROMBOSIS [None]
  - DEPRESSION [None]
  - FLANK PAIN [None]
  - HEART RATE INCREASED [None]
  - MYOGLOBIN BLOOD PRESENT [None]
  - NEUTROPHIL COUNT DECREASED [None]
  - OEDEMA PERIPHERAL [None]
  - PAIN IN EXTREMITY [None]
  - PLATELET COUNT DECREASED [None]
  - PULMONARY EMBOLISM [None]
  - PULMONARY INFARCTION [None]
